FAERS Safety Report 10763568 (Version 2)
Quarter: 2015Q1

REPORT INFORMATION
  Report Type: Spontaneous
  Country: FR (occurrence: FR)
  Receive Date: 20150204
  Receipt Date: 20150317
  Transmission Date: 20150721
  Serious: Yes (Hospitalization)
  Sender: FDA-Public Use
  Company Number: FR-PFIZER INC-2015042487

PATIENT
  Age: 75 Year
  Sex: Female

DRUGS (15)
  1. AMLOR [Concomitant]
     Active Substance: AMLODIPINE BESYLATE
  2. ZELITREX [Concomitant]
     Active Substance: VALACYCLOVIR HYDROCHLORIDE
  3. LYRICA [Suspect]
     Active Substance: PREGABALIN
     Dosage: 200 MG, 1X/DAY
     Route: 048
     Dates: start: 201405, end: 20150117
  4. DOXORUBICIN HYDROCHLORIDE. [Concomitant]
     Active Substance: DOXORUBICIN HYDROCHLORIDE
     Indication: NON-HODGKIN^S LYMPHOMA
     Dosage: UNK
     Route: 042
     Dates: start: 201406, end: 201410
  5. RITUXIMAB [Suspect]
     Active Substance: RITUXIMAB
     Indication: NON-HODGKIN^S LYMPHOMA
     Dosage: UNK
     Route: 042
     Dates: start: 201406, end: 201410
  6. INNOHEP [Concomitant]
     Active Substance: TINZAPARIN SODIUM
  7. OXYCONTIN [Concomitant]
     Active Substance: OXYCODONE HYDROCHLORIDE
  8. VINCRISTINE [Concomitant]
     Active Substance: VINCRISTINE
     Indication: NON-HODGKIN^S LYMPHOMA
     Dosage: UNK
     Route: 042
     Dates: start: 201406, end: 201410
  9. STILNOX [Concomitant]
     Active Substance: ZOLPIDEM TARTRATE
  10. CYCLOPHOSPHAMIDE. [Concomitant]
     Active Substance: CYCLOPHOSPHAMIDE
     Indication: NON-HODGKIN^S LYMPHOMA
     Dosage: UNK
     Route: 042
     Dates: start: 201406, end: 201410
  11. LEDERFOLIN [Concomitant]
     Active Substance: LEUCOVORIN CALCIUM
  12. CACIT D3 [Concomitant]
     Active Substance: CALCIUM\CHOLECALCIFEROL
  13. BACTRIM [Suspect]
     Active Substance: SULFAMETHOXAZOLE\TRIMETHOPRIM
     Dosage: 3 DF, WEEKLY
     Route: 048
     Dates: start: 201406, end: 20150114
  14. LEVOTHYROX [Concomitant]
     Active Substance: LEVOTHYROXINE
  15. PRAVASTATIN [Concomitant]
     Active Substance: PRAVASTATIN\PRAVASTATIN SODIUM

REACTIONS (4)
  - Fall [Unknown]
  - Agranulocytosis [Recovered/Resolved]
  - Confusional state [Unknown]
  - Somnolence [Unknown]

NARRATIVE: CASE EVENT DATE: 20150109
